FAERS Safety Report 16258230 (Version 2)
Quarter: 2019Q2

REPORT INFORMATION
  Report Type: Spontaneous
  Country: US (occurrence: US)
  Receive Date: 20190430
  Receipt Date: 20190610
  Transmission Date: 20190711
  Serious: Yes (Hospitalization)
  Sender: FDA-Public Use
  Company Number: US-VIFOR (INTERNATIONAL) INC.-VIT-2019-03931

PATIENT
  Age: 42 Year
  Sex: Male

DRUGS (16)
  1. ESCITALOPRAM OXALATE. [Concomitant]
     Active Substance: ESCITALOPRAM OXALATE
  2. COLCHICINE. [Concomitant]
     Active Substance: COLCHICINE
  3. AMLODIPINE BESYLATE. [Concomitant]
     Active Substance: AMLODIPINE BESYLATE
  4. DAILY-VITE [Concomitant]
  5. DOXYCYCLINE HYCLATE. [Concomitant]
     Active Substance: DOXYCYCLINE HYCLATE
  6. ULORIC [Concomitant]
     Active Substance: FEBUXOSTAT
  7. ATORVASTATIN CALCIUM. [Concomitant]
     Active Substance: ATORVASTATIN CALCIUM
  8. HUMALOG [Concomitant]
     Active Substance: INSULIN LISPRO
  9. VITAMIN C [Concomitant]
     Active Substance: ASCORBIC ACID
  10. WARFARIN SODIUM. [Concomitant]
     Active Substance: WARFARIN SODIUM
  11. FOSRENOL [Concomitant]
     Active Substance: LANTHANUM CARBONATE
  12. LIDOCAINE-PRILOCAINE [Concomitant]
     Active Substance: LIDOCAINE\PRILOCAINE
  13. VELTASSA [Suspect]
     Active Substance: PATIROMER
     Indication: HYPERKALAEMIA
     Route: 048
     Dates: start: 20181127
  14. CLINDAMYCIN PHOSPHATE. [Concomitant]
     Active Substance: CLINDAMYCIN PHOSPHATE
  15. IRON [Concomitant]
     Active Substance: IRON
  16. LANTUS [Concomitant]
     Active Substance: INSULIN GLARGINE

REACTIONS (2)
  - Skin graft [Unknown]
  - Hidradenitis [Unknown]

NARRATIVE: CASE EVENT DATE: 20190417
